FAERS Safety Report 4429824-1 (Version None)
Quarter: 2004Q3

REPORT INFORMATION
  Report Type: 
  Country: None (occurrence: None)
  Receive Date: 20040817
  Receipt Date: 20040804
  Transmission Date: 20050211
  Serious: Yes (Hospitalization, Other)
  Sender: FDA-Public Use
  Company Number: 2004045192

PATIENT
  Age: 29 Year
  Sex: Female
  Weight: 104.7809 kg

DRUGS (1)
  1. DILANTIN KAPSEAL [Suspect]
     Indication: EPILEPSY
     Dosage: 400 MG (100 MG, 2 IN 1 D), ORAL
     Route: 048
     Dates: start: 20040229

REACTIONS (8)
  - DRUG EXPOSURE DURING PREGNANCY [None]
  - FOETAL HEART RATE DECREASED [None]
  - METRORRHAGIA [None]
  - PREGNANCY [None]
  - ULTRASOUND SCAN ABNORMAL [None]
  - UTERINE DILATION AND CURETTAGE [None]
  - UTERINE DISORDER [None]
  - WEIGHT DECREASED [None]
